FAERS Safety Report 11929904 (Version 2)
Quarter: 2016Q1

REPORT INFORMATION
  Report Type: Spontaneous
  Country: CH (occurrence: CH)
  Receive Date: 20160120
  Receipt Date: 20160127
  Transmission Date: 20160526
  Serious: Yes (Other)
  Sender: FDA-Public Use
  Company Number: CH-GE HEALTHCARE MEDICAL DIAGNOSTICS-OSCN-PR-1601L-0005

PATIENT
  Age: 61 Year
  Sex: Female

DRUGS (6)
  1. GADOTERIDOL [Suspect]
     Active Substance: GADOTERIDOL
     Indication: PRODUCT USED FOR UNKNOWN INDICATION
     Route: 065
     Dates: start: 200201, end: 200201
  2. GADOTERATE MEGLUMINE [Suspect]
     Active Substance: GADOTERATE MEGLUMINE
     Indication: PRODUCT USED FOR UNKNOWN INDICATION
     Route: 065
     Dates: start: 200510, end: 200510
  3. GADOTERIDOL [Suspect]
     Active Substance: GADOTERIDOL
     Indication: DIAGNOSTIC PROCEDURE
  4. OMNISCAN [Suspect]
     Active Substance: GADODIAMIDE
     Indication: PRODUCT USED FOR UNKNOWN INDICATION
     Route: 065
     Dates: start: 200005, end: 200005
  5. OMNISCAN [Suspect]
     Active Substance: GADODIAMIDE
     Indication: DIAGNOSTIC PROCEDURE
     Route: 065
     Dates: start: 200009, end: 200009
  6. GADOTERATE MEGLUMINE [Suspect]
     Active Substance: GADOTERATE MEGLUMINE
     Indication: DIAGNOSTIC PROCEDURE

REACTIONS (6)
  - Nephrogenic systemic fibrosis [Unknown]
  - Nuclear magnetic resonance imaging brain abnormal [Unknown]
  - Neurological symptom [Unknown]
  - Aphasia [Unknown]
  - Disturbance in attention [Unknown]
  - Calciphylaxis [Unknown]

NARRATIVE: CASE EVENT DATE: 200512
